FAERS Safety Report 16545478 (Version 3)
Quarter: 2019Q3

REPORT INFORMATION
  Report Type: Report from Study
  Country: CA (occurrence: CA)
  Receive Date: 20190709
  Receipt Date: 20190830
  Transmission Date: 20191004
  Serious: Yes (Other)
  Sender: FDA-Public Use
  Company Number: CA-ROCHE-2023995

PATIENT
  Age: 48 Year
  Sex: Male
  Weight: 115 kg

DRUGS (19)
  1. XARELTO [Concomitant]
     Active Substance: RIVAROXABAN
     Route: 065
  2. SINGULAIR [Concomitant]
     Active Substance: MONTELUKAST SODIUM
     Route: 065
  3. VENTOLIN [Concomitant]
     Active Substance: ALBUTEROL SULFATE
  4. DEXILANT [Concomitant]
     Active Substance: DEXLANSOPRAZOLE
     Route: 065
  5. AZATHIOPRINE. [Suspect]
     Active Substance: AZATHIOPRINE
     Indication: PRODUCT USED FOR UNKNOWN INDICATION
     Route: 065
  6. VITAMIN C [Concomitant]
     Active Substance: ASCORBIC ACID
     Route: 065
  7. RITUXAN [Suspect]
     Active Substance: RITUXIMAB
     Indication: STIFF PERSON SYNDROME
     Route: 042
     Dates: start: 201611
  8. FERAMAX [Concomitant]
     Active Substance: IRON\POLYSACCHARIDES
     Route: 065
  9. IVIGLOB EX [Concomitant]
     Active Substance: HUMAN IMMUNOGLOBULIN G
     Route: 065
  10. SOTALOL. [Concomitant]
     Active Substance: SOTALOL
  11. RITUXAN [Suspect]
     Active Substance: RITUXIMAB
     Dosage: FIRST RPAP DOSE
     Route: 042
     Dates: start: 20171128
  12. SYMBICORT [Concomitant]
     Active Substance: BUDESONIDE\FORMOTEROL FUMARATE DIHYDRATE
     Dosage: 200/6 - 2 PUFFS BID-QID
     Route: 065
  13. DIFLUCAN [Concomitant]
     Active Substance: FLUCONAZOLE
  14. NASONEX [Concomitant]
     Active Substance: MOMETASONE FUROATE
  15. CELLCEPT [Suspect]
     Active Substance: MYCOPHENOLATE MOFETIL\MYCOPHENOLATE MOFETIL HYDROCHLORIDE
     Indication: STIFF PERSON SYNDROME
     Route: 065
  16. PLASMA-PLEX [Concomitant]
     Active Substance: PLASMA PROTEIN FRACTION (HUMAN)
     Route: 065
  17. BACLOFEN. [Concomitant]
     Active Substance: BACLOFEN
     Route: 065
  18. VALIUM [Concomitant]
     Active Substance: DIAZEPAM
     Route: 065
  19. GABAPENTIN. [Concomitant]
     Active Substance: GABAPENTIN
     Route: 065

REACTIONS (22)
  - Iron deficiency [Unknown]
  - Deep vein thrombosis [Unknown]
  - Heart rate decreased [Unknown]
  - Intentional product use issue [Unknown]
  - Weight increased [Unknown]
  - Pneumonia [Unknown]
  - Candida infection [Unknown]
  - Off label use [Unknown]
  - Atrial fibrillation [Recovered/Resolved]
  - Angiomyolipoma [Unknown]
  - Lower respiratory tract infection [Unknown]
  - Atrial flutter [Recovered/Resolved]
  - Gastrooesophageal reflux disease [Unknown]
  - Blood pressure diastolic decreased [Unknown]
  - Stiff person syndrome [Not Recovered/Not Resolved]
  - Atrial fibrillation [Unknown]
  - Pulmonary embolism [Unknown]
  - Therapeutic response shortened [Unknown]
  - Nasopharyngitis [Unknown]
  - Irritable bowel syndrome [Unknown]
  - Upper respiratory tract infection [Unknown]
  - Chronic sinusitis [Unknown]

NARRATIVE: CASE EVENT DATE: 201708
